FAERS Safety Report 23717820 (Version 1)
Quarter: 2024Q2

REPORT INFORMATION
  Report Type: Spontaneous
  Country: US (occurrence: None)
  Receive Date: 20240405
  Receipt Date: 20240405
  Transmission Date: 20240716
  Serious: No
  Sender: FDA-Public Use
  Company Number: None

PATIENT
  Sex: Female

DRUGS (3)
  1. TEZSPIRE [Suspect]
     Active Substance: TEZEPELUMAB-EKKO
     Indication: Asthma
     Route: 058
     Dates: start: 20220308
  2. FASENRA [Concomitant]
     Active Substance: BENRALIZUMAB
  3. PROMETHAZINE SOL [Concomitant]

REACTIONS (4)
  - Asthma [None]
  - Quality of life decreased [None]
  - Product dose omission in error [None]
  - Product distribution issue [None]
